FAERS Safety Report 7994857-5 (Version None)
Quarter: 2011Q4

REPORT INFORMATION
  Report Type: 
  Country: None (occurrence: None)
  Receive Date: 20111220
  Receipt Date: 20111212
  Transmission Date: 20120403
  Serious: Yes (Hospitalization, Other)
  Sender: FDA-Public Use
  Company Number: CA-SANOFI-AVENTIS-2011SA016809

PATIENT
  Age: 63 Year
  Sex: Male

DRUGS (10)
  1. BLINDED THERAPY [Suspect]
     Indication: PROSTATE CANCER
     Route: 048
     Dates: start: 20100527, end: 20101020
  2. PREDNISONE [Suspect]
     Indication: PROSTATE CANCER
     Route: 048
     Dates: start: 20100527
  3. DILAUDID [Concomitant]
     Dates: start: 20100614, end: 20101020
  4. CELEBREX [Concomitant]
     Dates: start: 20100401
  5. DOCETAXEL [Suspect]
     Route: 041
     Dates: start: 20101021, end: 20101021
  6. XYLOCAINE [Concomitant]
     Dates: start: 20100629
  7. DOCETAXEL [Suspect]
     Indication: PROSTATE CANCER
     Route: 041
     Dates: start: 20100527, end: 20100527
  8. DOCETAXEL [Suspect]
     Route: 041
  9. NASACORT [Concomitant]
     Dates: start: 20090304
  10. ZOLADEX [Concomitant]
     Dates: start: 20100121

REACTIONS (1)
  - PATHOLOGICAL FRACTURE [None]
